FAERS Safety Report 20858268 (Version 1)
Quarter: 2022Q2

REPORT INFORMATION
  Report Type: Spontaneous
  Country: US (occurrence: US)
  Receive Date: 20220521
  Receipt Date: 20220521
  Transmission Date: 20220720
  Serious: Yes (Death, Disabling, Other)
  Sender: FDA-Public Use
  Company Number: US-AMGEN-USASP2022082538

PATIENT

DRUGS (1)
  1. XGEVA [Suspect]
     Active Substance: DENOSUMAB
     Indication: Metastases to pelvis
     Dosage: UNK
     Route: 065

REACTIONS (5)
  - COVID-19 [Fatal]
  - Neoplasm progression [Fatal]
  - Plasma cell myeloma [Unknown]
  - Metastatic squamous cell carcinoma [Unknown]
  - Metastases to spine [Unknown]
